FAERS Safety Report 17295214 (Version 2)
Quarter: 2020Q1

REPORT INFORMATION
  Report Type: Spontaneous
  Country: US (occurrence: US)
  Receive Date: 20200121
  Receipt Date: 20200221
  Transmission Date: 20200409
  Serious: No
  Sender: FDA-Public Use
  Company Number: US-PFIZER INC-2020022718

PATIENT
  Age: 9 Decade
  Sex: Female
  Weight: 61.22 kg

DRUGS (2)
  1. DILANTIN [Suspect]
     Active Substance: PHENYTOIN
     Dosage: 300 MG, DAILY (3 TABS PER DAY ONE AM 2 PM)
     Route: 048
  2. DILANTIN [Suspect]
     Active Substance: PHENYTOIN
     Indication: EPILEPSY
     Dosage: 200 MG, 2X/DAY
     Route: 048
     Dates: start: 1988

REACTIONS (3)
  - Drug ineffective [Unknown]
  - Blood test abnormal [Unknown]
  - Feeling abnormal [Unknown]
